FAERS Safety Report 9996364 (Version 1)
Quarter: 2014Q1

REPORT INFORMATION
  Report Type: Spontaneous
  Country: US (occurrence: None)
  Receive Date: 20140221
  Receipt Date: 20140221
  Transmission Date: 20141002
  Serious: Yes (Other)
  Sender: FDA-Public Use
  Company Number: 1000052828

PATIENT
  Age: 62 Year
  Sex: Male

DRUGS (6)
  1. TUDORZA PRESSAIR (ACLIDINIUM BROMIDE) (400 MICROGRAM, POWDER) [Suspect]
     Indication: CHRONIC OBSTRUCTIVE PULMONARY DISEASE
     Dosage: 800MCG (400 MCG, 2 IN 1 D), ORAL  POWDER FOR INHALATION
     Route: 048
     Dates: start: 2013
  2. BLOOD PRESSURE PILL (NOS) (BLOOD PRESSURE PILL (NOS) (BLOOD PRESSURE PILL(NOS) [Concomitant]
  3. WATER PILL (NOS) (WATER PILL (NOS) (WATER PILL (NOS) ) [Concomitant]
  4. ASPIRIN (ACETYLSALICYLIC ACID) (ACETYLSALICYLIC ACID) [Concomitant]
  5. SLEEPING PILL (NOS) (SLEEPING PILL (NOS)) (SLEEPING PILL (NOS) ) [Concomitant]
  6. ZOLOFT  (SERTRALINE HYDROCHLORIDE) (SERTRALINE HYDROCHLORIDE) [Concomitant]

REACTIONS (3)
  - Rhinorrhoea [None]
  - Cough [None]
  - Sneezing [None]
